FAERS Safety Report 7726159-6 (Version None)
Quarter: 2011Q3

REPORT INFORMATION
  Report Type: 
  Country: None (occurrence: None)
  Receive Date: 20110831
  Receipt Date: 20110824
  Transmission Date: 20111222
  Serious: Yes (Death, Hospitalization)
  Sender: FDA-Public Use
  Company Number: DKLU1072679

PATIENT
  Age: 21 Year
  Sex: Male

DRUGS (1)
  1. DESOXYN [Suspect]
     Indication: PRODUCT USED FOR UNKNOWN INDICATION

REACTIONS (17)
  - TACHYCARDIA [None]
  - HYPOTENSION [None]
  - FAMILY STRESS [None]
  - ACIDOSIS [None]
  - DIALYSIS [None]
  - RHABDOMYOLYSIS [None]
  - SUICIDE ATTEMPT [None]
  - HYPERKALAEMIA [None]
  - CIRCULATORY COLLAPSE [None]
  - INTENTIONAL SELF-INJURY [None]
  - TREATMENT NONCOMPLIANCE [None]
  - OLIGURIA [None]
  - ELECTROCARDIOGRAM CHANGE [None]
  - AGITATION [None]
  - AGGRESSION [None]
  - DEPRESSED LEVEL OF CONSCIOUSNESS [None]
  - HAEMODYNAMIC INSTABILITY [None]
